FAERS Safety Report 25553051 (Version 2)
Quarter: 2025Q3

REPORT INFORMATION
  Report Type: Report from Study
  Country: CN (occurrence: CN)
  Receive Date: 20250715
  Receipt Date: 20250717
  Transmission Date: 20251021
  Serious: Yes (Hospitalization)
  Sender: ABBVIE
  Company Number: CN-ABBVIE-6367692

PATIENT
  Age: 68 Year
  Sex: Female

DRUGS (11)
  1. OZURDEX [Suspect]
     Active Substance: DEXAMETHASONE
     Indication: Diabetic retinal oedema
     Route: 050
     Dates: start: 20250529, end: 20250529
  2. OZURDEX [Suspect]
     Active Substance: DEXAMETHASONE
     Route: 050
     Dates: start: 20250626, end: 20250626
  3. CONBERCEPT [Concomitant]
     Active Substance: CONBERCEPT
     Indication: Diabetic retinal oedema
     Route: 047
     Dates: start: 20240718, end: 20240718
  4. CONBERCEPT [Concomitant]
     Active Substance: CONBERCEPT
     Indication: Diabetic retinal oedema
     Route: 047
     Dates: start: 20250529, end: 20250529
  5. CONBERCEPT [Concomitant]
     Active Substance: CONBERCEPT
     Indication: Diabetic retinal oedema
     Route: 031
     Dates: start: 20250626, end: 20250626
  6. ATORVASTATIN [Concomitant]
     Active Substance: ATORVASTATIN
     Indication: Hypercholesterolaemia
     Route: 048
     Dates: start: 2021
  7. INSULIN DEGLUDEC [Concomitant]
     Active Substance: INSULIN DEGLUDEC
     Indication: Diabetes mellitus
     Dosage: DOSE - 8 IU (INTERNATIONAL UNIT)
     Route: 058
     Dates: start: 2009
  8. IRBESARTAN [Concomitant]
     Active Substance: IRBESARTAN
     Indication: Hypertension
     Route: 048
     Dates: start: 2015
  9. EZETIMIBE\SIMVASTATIN [Concomitant]
     Active Substance: EZETIMIBE\SIMVASTATIN
     Indication: Hyperlipidaemia
     Route: 048
     Dates: start: 20250411
  10. METOPROLOL SUCCINATE [Concomitant]
     Active Substance: METOPROLOL SUCCINATE
     Indication: Atrial fibrillation
     Route: 048
     Dates: start: 20250430
  11. DAPAGLIFLOZIN [Concomitant]
     Active Substance: DAPAGLIFLOZIN
     Indication: Diabetes mellitus
     Dosage: 1 TABLET
     Route: 048
     Dates: start: 2019

REACTIONS (1)
  - Uterine polyp [Recovered/Resolved]

NARRATIVE: CASE EVENT DATE: 20250707
